FAERS Safety Report 7621987-X (Version None)
Quarter: 2011Q3

REPORT INFORMATION
  Report Type: 
  Country: None (occurrence: None)
  Receive Date: 20110720
  Receipt Date: 20110718
  Transmission Date: 20111222
  Serious: Yes (Hospitalization, Other)
  Sender: FDA-Public Use
  Company Number: GB-BRISTOL-MYERS SQUIBB COMPANY-14820146

PATIENT
  Age: 73 Year
  Sex: Female
  Weight: 87 kg

DRUGS (13)
  1. LIPITOR [Concomitant]
     Route: 048
     Dates: start: 20090707
  2. CANDESARTAN CILEXETIL [Concomitant]
     Indication: HYPERTENSION
     Dates: start: 20090719, end: 20091013
  3. FUROSEMIDE [Concomitant]
     Dates: start: 20090722
  4. SODIUM BICARBONATE [Concomitant]
     Indication: ELECTROLYTE IMBALANCE
     Route: 048
     Dates: start: 20090701
  5. BISOPROLOL [Concomitant]
     Indication: HYPERTENSION
     Route: 048
     Dates: end: 20091013
  6. ALLOPURINOL [Concomitant]
  7. SPRYCEL [Suspect]
     Indication: CHRONIC MYELOID LEUKAEMIA
     Dosage: INITIALLY INTERRUPTED OCT09 THE DC'D
     Route: 048
     Dates: start: 20090808, end: 20091013
  8. FLUOXETINE [Concomitant]
     Indication: DEPRESSION
     Dosage: DOSE- T
     Route: 048
     Dates: start: 20090320, end: 20091013
  9. HYDROXYUREA [Concomitant]
     Dosage: 1G ON SATURDAY AND SUNDAY
  10. LANSOPRAZOLE [Concomitant]
  11. WARFARIN SODIUM [Concomitant]
     Dates: start: 20090902
  12. AMLODIPINE [Concomitant]
  13. CANDESARTAN CILEXETIL [Concomitant]

REACTIONS (2)
  - CARDIAC FAILURE CONGESTIVE [None]
  - PULMONARY EMBOLISM [None]
